FAERS Safety Report 9356427 (Version 3)
Quarter: 2013Q3

REPORT INFORMATION
  Report Type: Spontaneous
  Country: US (occurrence: US)
  Receive Date: 20130619
  Receipt Date: 20130808
  Transmission Date: 20140515
  Serious: Yes (Hospitalization, Other)
  Sender: FDA-Public Use
  Company Number: US-009507513-1306USA005658

PATIENT
  Age: 64 Year
  Sex: Male

DRUGS (3)
  1. PEGINTRON [Suspect]
     Indication: HEPATITIS C
     Dosage: REDIPEN, UNK
     Dates: start: 20130605, end: 20130619
  2. REBETOL [Suspect]
     Indication: HEPATITIS C
     Dosage: UNK
     Route: 048
     Dates: start: 20130605, end: 20130619
  3. VICTRELIS [Suspect]
     Indication: HEPATITIS C
     Dosage: UNK
     Route: 048

REACTIONS (13)
  - Chronic obstructive pulmonary disease [Unknown]
  - Fatigue [Unknown]
  - Dehydration [Unknown]
  - Renal failure [Unknown]
  - Malaise [Unknown]
  - Tremor [Unknown]
  - Feeling hot [Unknown]
  - Chills [Unknown]
  - Weight decreased [Unknown]
  - Decreased appetite [Unknown]
  - Gait disturbance [Unknown]
  - Decreased appetite [Unknown]
  - Dyspnoea [Unknown]
